FAERS Safety Report 21376783 (Version 1)
Quarter: 2022Q3

REPORT INFORMATION
  Report Type: Spontaneous
  Country: CN (occurrence: CN)
  Receive Date: 20220926
  Receipt Date: 20220926
  Transmission Date: 20221027
  Serious: Yes (Other)
  Sender: FDA-Public Use
  Company Number: CN-NOVARTISPH-NVSC2022CN216808

PATIENT
  Sex: Female

DRUGS (3)
  1. CARBAMAZEPINE [Suspect]
     Active Substance: CARBAMAZEPINE
     Indication: Seizure
     Dosage: UNK
     Route: 048
  2. NITRAZEPAM [Suspect]
     Active Substance: NITRAZEPAM
     Indication: Seizure
     Dosage: UNK
     Route: 048
  3. VALPROMIDE [Suspect]
     Active Substance: VALPROMIDE
     Indication: Seizure
     Dosage: UNK
     Route: 048

REACTIONS (2)
  - Drug withdrawal convulsions [Recovered/Resolved]
  - Disease recurrence [Unknown]
